FAERS Safety Report 9222992 (Version 2)
Quarter: 2013Q2

REPORT INFORMATION
  Report Type: Report from Study
  Country: AT (occurrence: AT)
  Receive Date: 20130410
  Receipt Date: 20130611
  Transmission Date: 20140414
  Serious: Yes (Death, Hospitalization)
  Sender: FDA-Public Use
  Company Number: AT-ROCHE-1211041

PATIENT
  Age: 46 Year
  Sex: Male

DRUGS (3)
  1. ALTEPLASE [Suspect]
     Indication: MYOCARDIAL INFARCTION
     Dosage: 15 MG BOLUS FOLLOWED BY CONT. INFUSION OF 50 MG OVER 30 AND 35 MG OVER 60 MIN
     Route: 042
  2. ASPIRIN [Suspect]
     Indication: MYOCARDIAL INFARCTION
     Route: 065
  3. HEPARIN [Concomitant]
     Indication: MYOCARDIAL INFARCTION

REACTIONS (2)
  - Death [Fatal]
  - Epistaxis [Unknown]
